FAERS Safety Report 8305761 (Version 7)
Quarter: 2012Q4

REPORT INFORMATION
  Report Type: 
  Country: US (occurrence: US)
  Receive Date: 20111221
  Receipt Date: 20121115
  Transmission Date: 20130627
  Serious: Yes (Hospitalization, Other)
  Sender: FDA-Public Use
  Company Number: US-GLAXOSMITHKLINE-A0958847A

PATIENT
  Age: 45 Year
  Sex: Male
  Weight: 118.2 kg

DRUGS (10)
  1. FLOLAN [Suspect]
     Indication: PULMONARY ARTERIAL HYPERTENSION
     Route: 042
     Dates: start: 20111128
  2. LASIX [Concomitant]
     Dosage: 60MG Twice per day
     Route: 065
  3. ALDACTONE [Concomitant]
     Dosage: 25MG Per day
     Route: 065
  4. REVATIO [Concomitant]
     Dosage: 20MG Three times per day
     Route: 065
  5. TRACLEER [Concomitant]
     Dosage: 62.5MG Twice per day
     Route: 065
  6. METOLAZONE [Concomitant]
  7. COREG [Concomitant]
  8. OXYGEN [Concomitant]
  9. PROTONIX [Concomitant]
  10. NEURONTIN [Concomitant]

REACTIONS (9)
  - Weight increased [Recovered/Resolved]
  - Nausea [Recovered/Resolved]
  - Vomiting [Recovered/Resolved]
  - Tachycardia [Recovered/Resolved]
  - Decreased appetite [Recovered/Resolved]
  - Headache [Recovered/Resolved]
  - Ill-defined disorder [Unknown]
  - Infusion site haemorrhage [Unknown]
  - Infusion site erythema [Unknown]
